FAERS Safety Report 5288358-5 (Version None)
Quarter: 2007Q2

REPORT INFORMATION
  Report Type: 
  Country: None (occurrence: None)
  Receive Date: 20070405
  Receipt Date: 20070329
  Transmission Date: 20071010
  Serious: Yes (Hospitalization)
  Sender: FDA-Public Use
  Company Number: 2007AP00334

PATIENT
  Age: 14278 Day
  Sex: Female

DRUGS (7)
  1. OMEPRAL [Suspect]
     Indication: REFLUX OESOPHAGITIS
     Route: 048
     Dates: start: 20061130, end: 20061227
  2. OMEPRAL [Suspect]
     Route: 048
     Dates: start: 20061229
  3. LOXONIN [Suspect]
     Indication: ARTHRALGIA
     Route: 048
     Dates: start: 20030101
  4. LOXONIN [Suspect]
     Route: 048
     Dates: start: 20061130, end: 20061227
  5. LOXONIN [Suspect]
     Route: 048
     Dates: start: 20061228, end: 20061231
  6. AZULFIDINE-EN [Suspect]
     Indication: RHEUMATOID ARTHRITIS
     Route: 048
     Dates: start: 20061130, end: 20061227
  7. PREDNISOLONE [Concomitant]
     Indication: RHEUMATOID ARTHRITIS
     Route: 048
     Dates: start: 20030101

REACTIONS (1)
  - MYELITIS TRANSVERSE [None]
